FAERS Safety Report 16391468 (Version 1)
Quarter: 2019Q2

REPORT INFORMATION
  Report Type: Spontaneous
  Country: US (occurrence: US)
  Receive Date: 20190605
  Receipt Date: 20190605
  Transmission Date: 20190711
  Serious: No
  Sender: FDA-Public Use
  Company Number: US-JNJFOC-20190531112

PATIENT
  Age: 83 Year
  Sex: Female
  Weight: 54.43 kg

DRUGS (2)
  1. TYLENOL EXTRA STRENGTH [Suspect]
     Active Substance: ACETAMINOPHEN
     Indication: ARTHRITIS
     Dosage: 1 WHEN NEEDED, MAYBE EVERY OTHER WEEK
     Route: 048
     Dates: start: 20140522
  2. TYLENOL EXTRA STRENGTH [Suspect]
     Active Substance: ACETAMINOPHEN
     Indication: MYALGIA
     Dosage: 1 WHEN NEEDED, MAYBE EVERY OTHER WEEK
     Route: 048
     Dates: start: 20140522

REACTIONS (1)
  - Incorrect dose administered [Unknown]
